FAERS Safety Report 5604029-7 (Version None)
Quarter: 2008Q1

REPORT INFORMATION
  Report Type: 
  Country: None (occurrence: None)
  Receive Date: 20080128
  Receipt Date: 20080118
  Transmission Date: 20080703
  Serious: Yes (Other)
  Sender: FDA-Public Use
  Company Number: JP-BRISTOL-MYERS SQUIBB COMPANY-14054738

PATIENT
  Sex: Male

DRUGS (2)
  1. SINEMET [Suspect]
     Indication: PARKINSONISM
     Route: 048
     Dates: start: 20070514
  2. SYMMETREL [Suspect]

REACTIONS (1)
  - GYNAECOMASTIA [None]
